FAERS Safety Report 7722440-5 (Version None)
Quarter: 2011Q3

REPORT INFORMATION
  Report Type: 
  Country: None (occurrence: None)
  Receive Date: 20110831
  Receipt Date: 20100506
  Transmission Date: 20111222
  Serious: No
  Sender: FDA-Public Use
  Company Number: US-BAYER-201022064NA

PATIENT

DRUGS (3)
  1. VIAGRA [Concomitant]
  2. CIALIS [Concomitant]
  3. LEVITRA [Suspect]

REACTIONS (1)
  - HYPERSENSITIVITY [None]
